FAERS Safety Report 6489865-X (Version None)
Quarter: 2009Q4

REPORT INFORMATION
  Report Type: 
  Country: None (occurrence: None)
  Receive Date: 20091211
  Receipt Date: 20091207
  Transmission Date: 20100525
  Serious: Yes (Hospitalization, Other)
  Sender: FDA-Public Use
  Company Number: US-TEVA-217485USA

PATIENT
  Age: 55 Year
  Sex: Male

DRUGS (4)
  1. BLEOMYCIN SULFATE 15 UNITS/10 ML AND 30 UNITS/20ML [Suspect]
  2. DACARBAZINE [Suspect]
  3. DOXORUBICIN [Suspect]
  4. VINBLASTINE [Suspect]

REACTIONS (1)
  - SEPSIS [None]
